FAERS Safety Report 7606354-7 (Version None)
Quarter: 2011Q3

REPORT INFORMATION
  Report Type: 
  Country: None (occurrence: None)
  Receive Date: 20110713
  Receipt Date: 20110706
  Transmission Date: 20111222
  Serious: Yes (Hospitalization)
  Sender: FDA-Public Use
  Company Number: US-SANOFI-AVENTIS-2011SA039773

PATIENT
  Age: 83 Year
  Sex: Female

DRUGS (6)
  1. PLAVIX [Suspect]
     Route: 048
     Dates: start: 20110601
  2. SIMVASTATIN [Concomitant]
  3. PLAVIX [Suspect]
     Route: 048
     Dates: start: 20110513
  4. MAGNESIUM [Concomitant]
  5. ASPIRIN [Concomitant]
     Dosage: DURING THE WEEK
  6. RAMIPRIL [Concomitant]

REACTIONS (3)
  - RASH MACULAR [None]
  - DYSPNOEA [None]
  - CONTUSION [None]
